FAERS Safety Report 15281407 (Version 1)
Quarter: 2018Q3

REPORT INFORMATION
  Report Type: Spontaneous
  Country: FR (occurrence: FR)
  Receive Date: 20180815
  Receipt Date: 20180815
  Transmission Date: 20181010
  Serious: Yes (Other)
  Sender: FDA-Public Use
  Company Number: FR-PFIZER INC-2018166743

PATIENT
  Age: 15 Year
  Sex: Female

DRUGS (10)
  1. IFOSFAMIDE. [Interacting]
     Active Substance: IFOSFAMIDE
     Indication: SARCOMA METASTATIC
  2. ACTINOMYCIN D [Concomitant]
     Active Substance: DACTINOMYCIN
     Indication: SARCOMA METASTATIC
  3. VINCRISTINE SULFATE. [Suspect]
     Active Substance: VINCRISTINE SULFATE
     Indication: RHABDOMYOSARCOMA
     Dosage: 2 MG, UNK
     Route: 042
  4. VINCRISTINE SULFATE. [Interacting]
     Active Substance: VINCRISTINE SULFATE
     Indication: SARCOMA METASTATIC
  5. UROMITEXAN [Interacting]
     Active Substance: MESNA
     Indication: RHABDOMYOSARCOMA
     Dosage: 3.6 G/M2, IN CONTINUOUS 24 HR INFUSION
     Route: 041
  6. PHENOBARBITAL. [Interacting]
     Active Substance: PHENOBARBITAL
     Indication: GENERALISED TONIC-CLONIC SEIZURE
     Dosage: UNK
     Route: 048
  7. IFOSFAMIDE. [Interacting]
     Active Substance: IFOSFAMIDE
     Indication: RHABDOMYOSARCOMA
     Dosage: 3 G/M2, IN 3 HR INFUSION
     Route: 041
  8. METOCLOPRAMIDE. [Concomitant]
     Active Substance: METOCLOPRAMIDE
     Indication: ANTIEMETIC SUPPORTIVE CARE
     Dosage: 40 MG, UNK
  9. ACTINOMYCIN D [Concomitant]
     Active Substance: DACTINOMYCIN
     Indication: RHABDOMYOSARCOMA
     Dosage: 1000 GAMMA, UNK
     Route: 042
  10. UROMITEXAN [Interacting]
     Active Substance: MESNA
     Indication: SARCOMA METASTATIC

REACTIONS (2)
  - Encephalopathy [Recovered/Resolved]
  - Potentiating drug interaction [Recovered/Resolved]
